FAERS Safety Report 5340651-3 (Version None)
Quarter: 2007Q2

REPORT INFORMATION
  Report Type: 
  Country: None (occurrence: None)
  Receive Date: 20070405
  Receipt Date: 20070104
  Transmission Date: 20071010
  Serious: Yes (Hospitalization, Other)
  Sender: FDA-Public Use
  Company Number: US200701000831

PATIENT
  Age: 80 Year
  Sex: Female

DRUGS (2)
  1. CYMBALTA [Suspect]
     Indication: NEURALGIA
     Dosage: 60 MG, 2/D
     Dates: start: 20061101
  2. OXYCONTIN [Concomitant]

REACTIONS (2)
  - GRAND MAL CONVULSION [None]
  - PARTIAL SEIZURES [None]
